FAERS Safety Report 15885924 (Version 2)
Quarter: 2019Q1

REPORT INFORMATION
  Report Type: Report from Study
  Country: US (occurrence: US)
  Receive Date: 20190129
  Receipt Date: 20190206
  Transmission Date: 20190417
  Serious: Yes (Death, Life-Threatening, Hospitalization, Disabling, Other)
  Sender: FDA-Public Use
  Company Number: US-PFIZER INC-2019034391

PATIENT
  Age: 79 Year
  Sex: Female
  Weight: 70.75 kg

DRUGS (3)
  1. TYLENOL [Concomitant]
     Active Substance: ACETAMINOPHEN
     Indication: ARTHRITIS
     Dosage: 650 MG, Q 8 HORS FOR PAIN
     Route: 048
  2. LORLATINIB [Suspect]
     Active Substance: LORLATINIB
     Dosage: 100 MG, DAILY
     Route: 048
     Dates: start: 20180404, end: 20190116
  3. ACCUNEB [Concomitant]
     Active Substance: ALBUTEROL SULFATE
     Indication: CHRONIC OBSTRUCTIVE PULMONARY DISEASE
     Dosage: 1.25 UNK, NEBULIZER

REACTIONS (14)
  - Sepsis [Fatal]
  - Dyspnoea [Unknown]
  - Cardiac failure chronic [Unknown]
  - Lactic acidosis [Unknown]
  - Hypotension [Unknown]
  - Atrial fibrillation [Unknown]
  - Dehydration [Unknown]
  - Mental impairment [Unknown]
  - Hypomagnesaemia [Unknown]
  - Pneumonia [Unknown]
  - Shock [Unknown]
  - Brain natriuretic peptide increased [Unknown]
  - Electrocardiogram ST segment depression [Unknown]
  - Sinus tachycardia [Unknown]

NARRATIVE: CASE EVENT DATE: 20190116
